FAERS Safety Report 7879840-2 (Version None)
Quarter: 2011Q4

REPORT INFORMATION
  Report Type: 
  Country: None (occurrence: None)
  Receive Date: 20111101
  Receipt Date: 20111026
  Transmission Date: 20120403
  Serious: Yes (Other)
  Sender: FDA-Public Use
  Company Number: IL-ROCHE-1007036

PATIENT
  Sex: Female

DRUGS (3)
  1. XELODA [Concomitant]
     Indication: BREAST CANCER METASTATIC
  2. AVASTIN [Suspect]
     Indication: BREAST CANCER METASTATIC
     Dosage: UNKNOWN
     Route: 065
  3. TAXOL [Concomitant]
     Indication: BREAST CANCER METASTATIC

REACTIONS (2)
  - HEPATIC CIRRHOSIS [None]
  - HEPATIC STEATOSIS [None]
